FAERS Safety Report 7015977 (Version 11)
Quarter: 2013Q2

REPORT INFORMATION
  Report Type: Report from Study
  Country: CA (occurrence: CA)
  Receive Date: 20090610
  Receipt Date: 20130425
  Transmission Date: 20140414
  Serious: Yes (Hospitalization, Other)
  Sender: FDA-Public Use
  Company Number: PHHY2009CA17819

PATIENT
  Age: 64 Year
  Sex: Male

DRUGS (4)
  1. SANDOSTATIN LAR [Suspect]
     Indication: CARCINOID TUMOUR
     Dosage: 30 MG, EVRY 3 WEEKS
     Route: 030
     Dates: start: 20080918
  2. SANDOSTATIN LAR [Suspect]
     Dosage: 30 MG, ONCE A MONTH
     Route: 030
  3. SANDOSTATIN LAR [Suspect]
     Dosage: 30 MG EVERY 3 WEEKS
     Route: 042
  4. SANDOSTATIN LAR [Suspect]
     Dosage: 60 MG, EVERY 3 WEEKS
     Route: 030

REACTIONS (10)
  - Nephrolithiasis [Unknown]
  - Glucose tolerance impaired [Unknown]
  - Vertigo [Unknown]
  - Flushing [Unknown]
  - Feeling abnormal [Unknown]
  - Stress [Unknown]
  - Dysgeusia [Unknown]
  - Heart rate increased [Unknown]
  - Blood glucose decreased [Unknown]
  - Nausea [Unknown]
